FAERS Safety Report 14290633 (Version 1)
Quarter: 2017Q4

REPORT INFORMATION
  Report Type: Spontaneous
  Country: US (occurrence: US)
  Receive Date: 20171215
  Receipt Date: 20171215
  Transmission Date: 20180321
  Serious: No
  Sender: FDA-Public Use
  Company Number: US-009507513-1712USA007278

PATIENT

DRUGS (1)
  1. DAPTOMYCIN. [Suspect]
     Active Substance: DAPTOMYCIN

REACTIONS (6)
  - Product closure issue [Unknown]
  - Product quality issue [Unknown]
  - No adverse event [Unknown]
  - Product preparation error [Unknown]
  - Circumstance or information capable of leading to medication error [Unknown]
  - Product contamination physical [Unknown]
